FAERS Safety Report 9757256 (Version 1)
Quarter: 2013Q4

REPORT INFORMATION
  Report Type: Report from Study
  Country: DE (occurrence: DE)
  Receive Date: 20131213
  Receipt Date: 20131213
  Transmission Date: 20140711
  Serious: Yes (Hospitalization, Disabling, Other)
  Sender: FDA-Public Use
  Company Number: DE-ABBVIE-13P-062-1178237-00

PATIENT
  Age: 41 Year
  Sex: Female
  Weight: 62 kg

DRUGS (19)
  1. ZEMPLAR [Suspect]
     Indication: RENAL FAILURE
  2. LANTUS [Concomitant]
     Indication: PRODUCT USED FOR UNKNOWN INDICATION
  3. APIDRA [Concomitant]
     Indication: PRODUCT USED FOR UNKNOWN INDICATION
  4. OMEPRAZOLE [Concomitant]
     Indication: PRODUCT USED FOR UNKNOWN INDICATION
  5. ACETYLSALICYLIC ACID [Concomitant]
     Indication: PRODUCT USED FOR UNKNOWN INDICATION
  6. SIMVASTATIN [Concomitant]
     Indication: PRODUCT USED FOR UNKNOWN INDICATION
  7. AMLODIPIN [Concomitant]
     Indication: PRODUCT USED FOR UNKNOWN INDICATION
  8. CREON [Concomitant]
     Indication: PRODUCT USED FOR UNKNOWN INDICATION
  9. METOHEXAL [Concomitant]
     Indication: PRODUCT USED FOR UNKNOWN INDICATION
  10. BONDIOL [Concomitant]
     Indication: PRODUCT USED FOR UNKNOWN INDICATION
  11. MOTILIUM [Concomitant]
     Indication: PRODUCT USED FOR UNKNOWN INDICATION
  12. LYRICA [Concomitant]
     Indication: PRODUCT USED FOR UNKNOWN INDICATION
  13. OSVAREN [Concomitant]
     Indication: PRODUCT USED FOR UNKNOWN INDICATION
  14. DOMPERIDON [Concomitant]
     Indication: PRODUCT USED FOR UNKNOWN INDICATION
  15. HEPARIN [Concomitant]
     Indication: PRODUCT USED FOR UNKNOWN INDICATION
     Route: 058
  16. NOVALGIN [Concomitant]
     Indication: PRODUCT USED FOR UNKNOWN INDICATION
  17. MARCUMAR [Concomitant]
     Indication: PRODUCT USED FOR UNKNOWN INDICATION
  18. ERYPO [Concomitant]
     Indication: PRODUCT USED FOR UNKNOWN INDICATION
  19. LEVO C AL [Concomitant]
     Indication: PRODUCT USED FOR UNKNOWN INDICATION
     Dosage: 100 MG/25 MG

REACTIONS (7)
  - Necrosis [Recovered/Resolved]
  - Peripheral artery stenosis [Recovered/Resolved]
  - Peripheral artery stenosis [Recovered/Resolved]
  - Impaired healing [Not Recovered/Not Resolved]
  - Hyperphosphataemia [Unknown]
  - Malnutrition [Unknown]
  - Necrosis [Not Recovered/Not Resolved]
